FAERS Safety Report 7885977-4 (Version None)
Quarter: 2011Q4

REPORT INFORMATION
  Report Type: 
  Country: None (occurrence: None)
  Receive Date: 20111102
  Receipt Date: 20110705
  Transmission Date: 20120403
  Serious: No
  Sender: FDA-Public Use
  Company Number: US-AMGEN-USASP2011034065

PATIENT
  Sex: Female

DRUGS (2)
  1. ENBREL [Suspect]
     Dosage: 50 MG, QWK
     Dates: start: 20030101, end: 20070101
  2. HUMIRA [Concomitant]
     Dosage: UNK

REACTIONS (1)
  - RHEUMATOID ARTHRITIS [None]
